FAERS Safety Report 12712289 (Version 1)
Quarter: 2016Q3

REPORT INFORMATION
  Report Type: Spontaneous
  Country: US (occurrence: US)
  Receive Date: 20160902
  Receipt Date: 20160902
  Transmission Date: 20161109
  Serious: No
  Sender: FDA-Public Use
  Company Number: US-SEBELA IRELAND LIMITED-2016SEB01396

PATIENT

DRUGS (1)
  1. PEXEVA [Suspect]
     Active Substance: PAROXETINE MESYLATE
     Indication: PRODUCT USED FOR UNKNOWN INDICATION
     Dosage: UNK, UNKNOWN
     Route: 048

REACTIONS (6)
  - Disturbance in attention [Unknown]
  - Dizziness [Unknown]
  - Insomnia [Unknown]
  - Product quality issue [Unknown]
  - Tachyphrenia [Unknown]
  - Tremor [Unknown]
